FAERS Safety Report 9419234 (Version 1)
Quarter: 2013Q3

REPORT INFORMATION
  Report Type: Spontaneous
  Country: US (occurrence: US)
  Receive Date: 20130725
  Receipt Date: 20130725
  Transmission Date: 20140515
  Serious: No
  Sender: FDA-Public Use
  Company Number: US-GLAXOSMITHKLINE-A0981397A

PATIENT
  Age: 70 Year
  Sex: Female

DRUGS (6)
  1. LAMICTAL [Suspect]
     Indication: NEURALGIA
     Dosage: 50MG PER DAY
     Route: 048
     Dates: start: 20120530
  2. MIRAPEX [Concomitant]
  3. SYNTHROID [Concomitant]
  4. VIT D [Concomitant]
  5. CELEXA [Concomitant]
  6. LIPITOR [Concomitant]

REACTIONS (3)
  - Condition aggravated [Unknown]
  - Ill-defined disorder [Unknown]
  - Off label use [Unknown]
